FAERS Safety Report 17373442 (Version 1)
Quarter: 2020Q1

REPORT INFORMATION
  Report Type: Spontaneous
  Country: US (occurrence: US)
  Receive Date: 20200204
  Receipt Date: 20200204
  Transmission Date: 20200409
  Serious: Yes (Other)
  Sender: FDA-Public Use
  Company Number: None

PATIENT
  Age: 59 Year
  Sex: Female

DRUGS (2)
  1. ATORVASTATIN [Suspect]
     Active Substance: ATORVASTATIN
  2. PRAVASTATIN. [Suspect]
     Active Substance: PRAVASTATIN

REACTIONS (1)
  - Myalgia [None]

NARRATIVE: CASE EVENT DATE: 20200204
